FAERS Safety Report 4621305-5 (Version None)
Quarter: 2005Q1

REPORT INFORMATION
  Report Type: 
  Country: None (occurrence: None)
  Receive Date: 20050323
  Receipt Date: 20050323
  Transmission Date: 20050727
  Serious: Yes (Death)
  Sender: FDA-Public Use
  Company Number: None

PATIENT
  Sex: Male
  Weight: 51.7101 kg

DRUGS (1)
  1. MEGACE [Suspect]
     Indication: WEIGHT DECREASED
     Dosage: 800MG QD PO
     Route: 048
     Dates: start: 20050211, end: 20050315

REACTIONS (1)
  - DEATH [None]
